FAERS Safety Report 21593698 (Version 1)
Quarter: 2022Q4

REPORT INFORMATION
  Report Type: Spontaneous
  Country: US (occurrence: US)
  Receive Date: 20221115
  Receipt Date: 20221115
  Transmission Date: 20230112
  Serious: No
  Sender: FDA-Public Use
  Company Number: US-ELI_LILLY_AND_COMPANY-US202211002904

PATIENT
  Age: 63 Year
  Sex: Male

DRUGS (3)
  1. MOUNJARO [Suspect]
     Active Substance: TIRZEPATIDE
     Indication: Glycosylated haemoglobin increased
     Dosage: 10 MG, UNKNOWN
     Route: 065
     Dates: start: 202207
  2. LANTUS [Concomitant]
     Active Substance: INSULIN GLARGINE
     Indication: Glycosylated haemoglobin increased
     Dosage: 30 U
  3. METFORMIN [Concomitant]
     Active Substance: METFORMIN HYDROCHLORIDE
     Indication: Glycosylated haemoglobin increased
     Dosage: UNK UNK, BID

REACTIONS (2)
  - Glycosylated haemoglobin increased [Unknown]
  - Incorrect dose administered [Recovering/Resolving]

NARRATIVE: CASE EVENT DATE: 20221027
